FAERS Safety Report 11779272 (Version 1)
Quarter: 2015Q4

REPORT INFORMATION
  Report Type: Spontaneous
  Country: MX (occurrence: MX)
  Receive Date: 20151125
  Receipt Date: 20151125
  Transmission Date: 20160304
  Serious: Yes (Hospitalization)
  Sender: FDA-Public Use
  Company Number: MX-ASTRAZENECA-2015SE87919

PATIENT
  Age: 22216 Day
  Sex: Male

DRUGS (4)
  1. GLIPIZIDE. [Concomitant]
     Active Substance: GLIPIZIDE
  2. ISGLT2 [Concomitant]
  3. METFORMIN [Concomitant]
     Active Substance: METFORMIN HYDROCHLORIDE
  4. FORXIGA [Suspect]
     Active Substance: DAPAGLIFLOZIN
     Indication: DIABETES MELLITUS
     Route: 048
     Dates: start: 20141024, end: 20141113

REACTIONS (2)
  - Escherichia urinary tract infection [Unknown]
  - Urosepsis [Recovered/Resolved]

NARRATIVE: CASE EVENT DATE: 20141113
